FAERS Safety Report 8153444-9 (Version None)
Quarter: 2012Q1

REPORT INFORMATION
  Report Type: 
  Country: None (occurrence: None)
  Receive Date: 20120221
  Receipt Date: 20120215
  Transmission Date: 20120608
  Serious: Yes (Disabling, Other)
  Sender: FDA-Public Use
  Company Number: MT-ABBOTT-11P-103-0877292-00

PATIENT
  Age: 42 Year
  Sex: Female

DRUGS (2)
  1. MUCICLAR [Concomitant]
     Indication: PRODUCT USED FOR UNKNOWN INDICATION
     Route: 048
  2. CLARITHROMYCIN [Suspect]
     Indication: TONSILLITIS
     Route: 048
     Dates: start: 20110901

REACTIONS (4)
  - MOUTH ULCERATION [None]
  - TONGUE DISORDER [None]
  - SPEECH DISORDER [None]
  - HYPOPHAGIA [None]
